FAERS Safety Report 5052528-1 (Version None)
Quarter: 2006Q3

REPORT INFORMATION
  Report Type: 
  Country: None (occurrence: None)
  Receive Date: 20060717
  Receipt Date: 20060712
  Transmission Date: 20061208
  Serious: Yes (Death)
  Sender: FDA-Public Use
  Company Number: PHBS2006JP10463

PATIENT
  Age: 92 Year
  Sex: Female

DRUGS (5)
  1. VALSARTAN [Suspect]
     Route: 048
  2. DIGOXIN [Suspect]
  3. AROTINOLOL HYDROCHLORIDE [Suspect]
  4. ISOSORBIDE [Concomitant]
  5. IFENPRODIL TARTRATE [Concomitant]

REACTIONS (3)
  - CARDIOVASCULAR INSUFFICIENCY [None]
  - DRUG ADMINISTRATION ERROR [None]
  - NAUSEA [None]
